FAERS Safety Report 16346980 (Version 2)
Quarter: 2025Q3

REPORT INFORMATION
  Report Type: Spontaneous
  Country: EU (occurrence: EU)
  Receive Date: 20190523
  Receipt Date: 20250803
  Transmission Date: 20251021
  Serious: Yes (Death, Other)
  Sender: AUROBINDO
  Company Number: EU-AUROBINDO-AUR-APL-2019-028627

PATIENT
  Age: 79 Year
  Sex: Male

DRUGS (3)
  1. PRAMIPEXOLE [Suspect]
     Active Substance: PRAMIPEXOLE
     Indication: Parkinson^s disease
     Route: 048
  2. BENSERAZIDE\LEVODOPA [Suspect]
     Active Substance: BENSERAZIDE\LEVODOPA
     Indication: Parkinson^s disease
     Dosage: 2000 MILLIGRAM, ONCE A DAY
     Route: 048
  3. APOMORPHINE [Concomitant]
     Active Substance: APOMORPHINE
     Indication: Product used for unknown indication
     Dosage: 168 MILLIGRAM, ONCE A DAY (9 MG/H OVER 12 HOURS DURING THE DAY, 5 MG/H OVER 12 HOURS AT NIGHT)
     Route: 058

REACTIONS (4)
  - Skin necrosis [Fatal]
  - Parkinson^s disease [Fatal]
  - General physical health deterioration [Fatal]
  - Concomitant disease aggravated [Fatal]
